FAERS Safety Report 12605838 (Version 1)
Quarter: 2016Q3

REPORT INFORMATION
  Report Type: Spontaneous
  Country: US (occurrence: None)
  Receive Date: 20160728
  Receipt Date: 20160728
  Transmission Date: 20161109
  Serious: Yes (Other)
  Sender: FDA-Public Use
  Company Number: None

PATIENT
  Age: 31 Year
  Sex: Male
  Weight: 88.91 kg

DRUGS (4)
  1. CIPRO [Suspect]
     Active Substance: CIPROFLOXACIN HYDROCHLORIDE
     Indication: TIBIA FRACTURE
     Route: 048
     Dates: start: 19970701, end: 19980701
  2. CIPRO [Suspect]
     Active Substance: CIPROFLOXACIN HYDROCHLORIDE
     Indication: OSTEOMYELITIS
     Route: 048
     Dates: start: 19970701, end: 19980701
  3. CIPRO [Suspect]
     Active Substance: CIPROFLOXACIN HYDROCHLORIDE
     Indication: FIBULA FRACTURE
     Route: 048
     Dates: start: 19970701, end: 19980701
  4. ADVIL [Concomitant]
     Active Substance: IBUPROFEN

REACTIONS (4)
  - Long QT syndrome [None]
  - Tendon pain [None]
  - Joint swelling [None]
  - Movement disorder [None]

NARRATIVE: CASE EVENT DATE: 19980202
